FAERS Safety Report 6791048-0 (Version None)
Quarter: 2010Q2

REPORT INFORMATION
  Report Type: 
  Country: None (occurrence: None)
  Receive Date: 20100624
  Receipt Date: 20100614
  Transmission Date: 20101027
  Serious: Yes (Other)
  Sender: FDA-Public Use
  Company Number: DE-BRISTOL-MYERS SQUIBB COMPANY-15159114

PATIENT
  Age: 73 Year
  Sex: Female

DRUGS (9)
  1. LYSODREN [Suspect]
     Indication: ADRENOCORTICAL CARCINOMA
     Dosage: 6G/DAY. INTERRUPTED ON 20MAY10 AND RESTARTED ON 24MAY2010: 2DF 2 IN 1 D (2G/D) DURATION:63 DAYS
     Route: 048
     Dates: start: 20100317, end: 20100101
  2. HYDROCORTISONE [Concomitant]
     Indication: SECONDARY ADRENOCORTICAL INSUFFICIENCY
     Dosage: HYDROCORTISONE 10 MG
  3. SIMVASTATIN [Concomitant]
     Indication: SECONDARY ADRENOCORTICAL INSUFFICIENCY
     Dosage: SIMVASTATIN 10 MG
  4. EFEROX [Concomitant]
     Dosage: EFEXOR 125
  5. LISINOPRIL AND HYDROCHLOROTHIAZIDE [Concomitant]
     Dosage: LISIPLUS AL 20/12.5
  6. VIGANTOLETTEN [Concomitant]
     Dosage: VIGANTOLETTEN 1000
  7. METOCLOPRAMIDE [Concomitant]
     Dosage: 1DF 1 UNIT NOS WHEN NEEDED 3X20 DRP METOCLOPRAMID  RATIO DROPLETS
  8. DICLOFENAC [Concomitant]
     Indication: PAIN
     Dosage: 0.2857 DF (1 DF 2 IN 1 WK)
  9. OMEPRAZOLE [Concomitant]
     Dosage: OMEPRAZOLE  20

REACTIONS (21)
  - ALANINE AMINOTRANSFERASE INCREASED [None]
  - BLOOD CORTISOL INCREASED [None]
  - BLOOD SODIUM DECREASED [None]
  - BLOOD THYROID STIMULATING HORMONE DECREASED [None]
  - DEHYDROEPIANDROSTERONE DECREASED [None]
  - DISTURBANCE IN ATTENTION [None]
  - DIZZINESS [None]
  - DRUG LEVEL ABOVE THERAPEUTIC [None]
  - EOSINOPHIL COUNT INCREASED [None]
  - FATIGUE [None]
  - GAMMA-GLUTAMYLTRANSFERASE INCREASED [None]
  - HAEMATOCRIT DECREASED [None]
  - HAEMOGLOBIN DECREASED [None]
  - HYPERCHOLESTEROLAEMIA [None]
  - LOW DENSITY LIPOPROTEIN INCREASED [None]
  - LYMPHOCYTE COUNT DECREASED [None]
  - NEUTROPHIL COUNT INCREASED [None]
  - VERTIGO [None]
  - VISION BLURRED [None]
  - VISUAL ACUITY REDUCED [None]
  - WHITE BLOOD CELL COUNT DECREASED [None]
